FAERS Safety Report 14186393 (Version 1)
Quarter: 2017Q4

REPORT INFORMATION
  Report Type: Spontaneous
  Country: SE (occurrence: SE)
  Receive Date: 20171114
  Receipt Date: 20171114
  Transmission Date: 20180321
  Serious: Yes (Hospitalization)
  Sender: FDA-Public Use
  Company Number: SE-CONCORDIA PHARMACEUTICALS INC.-GSH201711-006352

PATIENT
  Age: 57 Year
  Sex: Female

DRUGS (11)
  1. INDIVINA [Concomitant]
  2. BEHEPAN [Concomitant]
     Active Substance: HYDROXOCOBALAMIN
  3. TRADOLAN [Concomitant]
     Active Substance: TRAMADOL
  4. PLAQUENIL [Suspect]
     Active Substance: HYDROXYCHLOROQUINE SULFATE
     Indication: SJOGREN^S SYNDROME
     Route: 048
     Dates: end: 20170619
  5. OMEPRAZOLE. [Concomitant]
     Active Substance: OMEPRAZOLE
  6. FOLACIN [Concomitant]
     Active Substance: FOLIC ACID
  7. METOTAB [Concomitant]
     Active Substance: METHOTREXATE SODIUM
  8. ALVEDON [Concomitant]
     Active Substance: ACETAMINOPHEN
  9. CYMBALTA [Concomitant]
     Active Substance: DULOXETINE HYDROCHLORIDE
  10. PLAQUENIL [Suspect]
     Active Substance: HYDROXYCHLOROQUINE SULFATE
     Indication: POLYARTHRITIS
  11. BRUFEN [Concomitant]
     Active Substance: IBUPROFEN

REACTIONS (3)
  - Cardiac failure [Recovered/Resolved]
  - Chest discomfort [Recovered/Resolved]
  - Dyspnoea [Recovered/Resolved]

NARRATIVE: CASE EVENT DATE: 20170619
